FAERS Safety Report 4791547-7 (Version None)
Quarter: 2005Q4

REPORT INFORMATION
  Report Type: 
  Country: None (occurrence: None)
  Receive Date: 20051007
  Receipt Date: 20050208
  Transmission Date: 20060501
  Serious: No
  Sender: FDA-Public Use
  Company Number: US-BRISTOL-MYERS SQUIBB COMPANY-12863445

PATIENT
  Age: 75 Year
  Sex: Male
  Weight: 73 kg

DRUGS (4)
  1. AVAPRO [Suspect]
     Indication: HYPERTENSION
     Dates: start: 20030101
  2. COSOPT [Concomitant]
  3. GABAPENTIN [Concomitant]
  4. HYDROCHLOROTHIAZIDE [Concomitant]
     Indication: FLUID RETENTION

REACTIONS (6)
  - ABDOMINAL DISTENSION [None]
  - BLOOD CHOLESTEROL INCREASED [None]
  - CONSTIPATION [None]
  - DEPRESSION [None]
  - DRUG INEFFECTIVE [None]
  - ERECTILE DYSFUNCTION [None]
